FAERS Safety Report 5895120-9 (Version None)
Quarter: 2008Q3

REPORT INFORMATION
  Report Type: 
  Country: None (occurrence: None)
  Receive Date: 20080924
  Receipt Date: 20080911
  Transmission Date: 20090109
  Serious: Yes (Life-Threatening)
  Sender: FDA-Public Use
  Company Number: AU-PFIZER INC-2008076849

PATIENT
  Age: 28 Year
  Sex: Male
  Weight: 110 kg

DRUGS (1)
  1. CHANTIX [Suspect]
     Indication: TOBACCO USER
     Dosage: DAILY DOSE:2MG
     Route: 048
     Dates: start: 20080528, end: 20080819

REACTIONS (4)
  - ABNORMAL DREAMS [None]
  - INSOMNIA [None]
  - SUICIDAL IDEATION [None]
  - THOUGHT BROADCASTING [None]
